FAERS Safety Report 7325643-7 (Version None)
Quarter: 2011Q1

REPORT INFORMATION
  Report Type: 
  Country: None (occurrence: None)
  Receive Date: 20110302
  Receipt Date: 20110224
  Transmission Date: 20110831
  Serious: Yes (Other)
  Sender: FDA-Public Use
  Company Number: US-PFIZER INC-2011041772

PATIENT
  Sex: Female

DRUGS (1)
  1. CHANTIX [Suspect]
     Dosage: UNK
     Dates: start: 20070301

REACTIONS (6)
  - PARANOIA [None]
  - AMNESIA [None]
  - DEPRESSION [None]
  - ANXIETY [None]
  - ANGER [None]
  - BIPOLAR DISORDER [None]
